FAERS Safety Report 8241394-9 (Version None)
Quarter: 2012Q1

REPORT INFORMATION
  Report Type: 
  Country: None (occurrence: None)
  Receive Date: 20120328
  Receipt Date: 20120326
  Transmission Date: 20120608
  Serious: No
  Sender: FDA-Public Use
  Company Number: US-BAYER-2012-030135

PATIENT
  Age: 78 Year
  Sex: Female

DRUGS (1)
  1. GADAVIST [Suspect]
     Indication: NUCLEAR MAGNETIC RESONANCE IMAGING
     Dosage: 6 ML, UNK

REACTIONS (5)
  - SNEEZING [None]
  - URTICARIA [None]
  - OEDEMA MOUTH [None]
  - OCULAR HYPERAEMIA [None]
  - DYSPNOEA [None]
